FAERS Safety Report 7376095-2 (Version None)
Quarter: 2011Q1

REPORT INFORMATION
  Report Type: 
  Country: None (occurrence: None)
  Receive Date: 20110325
  Receipt Date: 20110322
  Transmission Date: 20110831
  Serious: Yes (Death, Hospitalization)
  Sender: FDA-Public Use
  Company Number: DE-BRISTOL-MYERS SQUIBB COMPANY-15630296

PATIENT
  Age: 53 Year

DRUGS (7)
  1. TORSEMIDE [Concomitant]
     Dosage: 1DF=HALF TABS TORSEMIDE 10MG
  2. OMEPRAZOLE [Concomitant]
  3. CISPLATIN [Suspect]
     Indication: HEAD AND NECK CANCER
     Dosage: RECENT INF:18MAR11
     Route: 042
     Dates: start: 20110310, end: 20110318
  4. POTASSIUM CHLORIDE [Concomitant]
     Dosage: 1DF=600 UNITS NOS
  5. DOCETAXEL [Suspect]
     Indication: HEAD AND NECK CANCER
     Dosage: RECENT INF:18MAR11
     Route: 042
     Dates: start: 20110310, end: 20110318
  6. NEBIVOLOL [Concomitant]
     Dosage: 1DF=HALF TABS
  7. CETUXIMAB [Suspect]
     Indication: HEAD AND NECK CANCER
     Dosage: RECENT INF:18MAR11
     Route: 042
     Dates: start: 20110310, end: 20110318

REACTIONS (1)
  - INTESTINAL ISCHAEMIA [None]
